FAERS Safety Report 9643258 (Version 1)
Quarter: 2013Q4

REPORT INFORMATION
  Report Type: Spontaneous
  Country: TR (occurrence: TR)
  Receive Date: 20131024
  Receipt Date: 20131024
  Transmission Date: 20140711
  Serious: Yes (Other)
  Sender: FDA-Public Use
  Company Number: TR-BAXTER-2013BAX040604

PATIENT
  Age: 37 Year
  Sex: Female

DRUGS (1)
  1. TISSEEL LYO 2 ML TROMBIN COZELTISI VE 2 ML FIBRINOJEN COZELTISI ICEREN [Suspect]
     Indication: STRABISMUS CORRECTION

REACTIONS (1)
  - Dellen [Recovered/Resolved]
